FAERS Safety Report 17631562 (Version 1)
Quarter: 2020Q2

REPORT INFORMATION
  Report Type: Spontaneous
  Country: US (occurrence: US)
  Receive Date: 20200406
  Receipt Date: 20200406
  Transmission Date: 20200713
  Serious: No
  Sender: FDA-Public Use
  Company Number: US-VERTEX PHARMACEUTICALS-2020-007862

PATIENT
  Sex: Female

DRUGS (3)
  1. CAYSTON [Concomitant]
     Active Substance: AZTREONAM
     Dosage: 75 MG
  2. TRIKAFTA [Suspect]
     Active Substance: ELEXACAFTOR\IVACAFTOR\TEZACAFTOR
     Indication: CYSTIC FIBROSIS
     Dosage: 100MG ELEXACAFTOR/50MG TEZACAFTOR/75MG IVACAFTOR AM AND 150MG IVACAFTOR PM
     Route: 048
  3. PULMOZYME [Concomitant]
     Active Substance: DORNASE ALFA
     Dosage: 2.5 MG

REACTIONS (1)
  - Infection [Unknown]
